FAERS Safety Report 16821234 (Version 1)
Quarter: 2019Q3

REPORT INFORMATION
  Report Type: Spontaneous
  Country: US (occurrence: US)
  Receive Date: 20190918
  Receipt Date: 20190918
  Transmission Date: 20191005
  Serious: Yes (Other)
  Sender: FDA-Public Use
  Company Number: US-TORRENT-00009153

PATIENT
  Age: 59 Year
  Sex: Male
  Weight: 72 kg

DRUGS (1)
  1. LOSARTAN POTASSIUM. [Suspect]
     Active Substance: LOSARTAN POTASSIUM
     Indication: HYPERTENSION
     Dosage: 3 TIMES A DAY, VARIOUS DOSAGE LIKE 100 MG, 50 MG AND 25 MG
     Dates: start: 2003, end: 2019

REACTIONS (1)
  - Renal disorder [Not Recovered/Not Resolved]
